FAERS Safety Report 21401248 (Version 1)
Quarter: 2022Q4

REPORT INFORMATION
  Report Type: Other
  Country: US (occurrence: None)
  Receive Date: 20221003
  Receipt Date: 20221003
  Transmission Date: 20230113
  Serious: Yes (Other)
  Sender: FDA-Public Use
  Company Number: US-ROCHE-3073903

PATIENT
  Sex: Female

DRUGS (16)
  1. ACTEMRA [Suspect]
     Active Substance: TOCILIZUMAB
     Indication: Multifocal fibrosclerosis
     Route: 058
  2. ACTEMRA [Suspect]
     Active Substance: TOCILIZUMAB
  3. ACTEMRA [Suspect]
     Active Substance: TOCILIZUMAB
  4. ACTEMRA [Suspect]
     Active Substance: TOCILIZUMAB
     Indication: Behcet^s syndrome
     Route: 058
     Dates: start: 20220915
  5. ACTEMRA [Suspect]
     Active Substance: TOCILIZUMAB
  6. ACTEMRA [Suspect]
     Active Substance: TOCILIZUMAB
  7. ACTEMRA [Suspect]
     Active Substance: TOCILIZUMAB
     Indication: Multifocal fibrosclerosis
     Dosage: INFUSE 4MG/KG (350.8MG) INTRAVENOUSLY EVERY 30 DAY 200MG, DATE OF SERVICE:
     Route: 042
  8. TYLENOL [Concomitant]
     Active Substance: ACETAMINOPHEN
  9. ALBUTEROL [Concomitant]
     Active Substance: ALBUTEROL
  10. VITAMIN C [Concomitant]
     Active Substance: ASCORBIC ACID
  11. ASPIRIN [Concomitant]
     Active Substance: ASPIRIN
  12. LIPITOR [Concomitant]
     Active Substance: ATORVASTATIN CALCIUM
  13. TEMOVATE [Concomitant]
     Active Substance: CLOBETASOL PROPIONATE
  14. LASIX [Concomitant]
     Active Substance: FUROSEMIDE
  15. MICROZIDE [Concomitant]
     Active Substance: HYDROCHLOROTHIAZIDE
  16. DIOVAN [Concomitant]
     Active Substance: VALSARTAN

REACTIONS (8)
  - Hyperkalaemia [Unknown]
  - Off label use [Unknown]
  - Iron deficiency anaemia [Unknown]
  - Purpura senile [Unknown]
  - Sacroiliitis [Unknown]
  - Pulmonary mass [Unknown]
  - Diarrhoea [Unknown]
  - Back pain [Unknown]
